FAERS Safety Report 21956830 (Version 1)
Quarter: 2023Q1

REPORT INFORMATION
  Report Type: Spontaneous
  Country: JP (occurrence: JP)
  Receive Date: 20230206
  Receipt Date: 20230206
  Transmission Date: 20230417
  Serious: Yes (Other)
  Sender: FDA-Public Use
  Company Number: JP-COSETTE-CP2023JP000019

PATIENT
  Age: 84 Year
  Sex: Female
  Weight: 50 kg

DRUGS (17)
  1. EFFIENT [Suspect]
     Active Substance: PRASUGREL HYDROCHLORIDE
     Indication: Coronary artery disease
     Route: 048
  2. EPINEPHRINE [Suspect]
     Active Substance: EPINEPHRINE
     Indication: Blood pressure decreased
     Dosage: 0.03UG/KG/MIN
     Route: 065
  3. EPINEPHRINE [Suspect]
     Active Substance: EPINEPHRINE
     Dosage: 0.06UG/KG/MIN
     Route: 065
  4. EPINEPHRINE [Suspect]
     Active Substance: EPINEPHRINE
     Dosage: 0.1UG/KG/MIN
     Route: 065
  5. AMLODIPINE [Concomitant]
     Active Substance: AMLODIPINE BESYLATE
     Indication: Hypertension
     Route: 065
  6. ASPIRIN [Concomitant]
     Active Substance: ASPIRIN
     Indication: Coronary artery disease
     Route: 065
  7. NICORANDIL [Concomitant]
     Active Substance: NICORANDIL
     Indication: Coronary artery disease
     Route: 065
  8. FENTANYL CITRATE [Concomitant]
     Active Substance: FENTANYL CITRATE
     Indication: Anaesthesia
     Route: 065
  9. MIDAZOLAM [Concomitant]
     Active Substance: MIDAZOLAM
     Indication: Anaesthesia
     Route: 065
  10. ROCURONIUM [Concomitant]
     Active Substance: ROCURONIUM BROMIDE
     Indication: Anaesthesia
     Route: 065
  11. SEVOFLURANE [Concomitant]
     Active Substance: SEVOFLURANE
     Indication: Product used for unknown indication
     Route: 065
  12. PROPOFOL [Concomitant]
     Active Substance: PROPOFOL
     Indication: Product used for unknown indication
     Route: 065
  13. DOBUTAMINE [Concomitant]
     Active Substance: DOBUTAMINE HYDROCHLORIDE
     Indication: Product used for unknown indication
     Route: 065
  14. NOREPINEPHRINE [Concomitant]
     Active Substance: NOREPINEPHRINE
     Indication: Product used for unknown indication
     Route: 065
  15. VASOPRESSIN [Concomitant]
     Active Substance: VASOPRESSIN
     Indication: Product used for unknown indication
     Route: 065
  16. ISOSORBIDE DINITRATE [Concomitant]
     Active Substance: ISOSORBIDE DINITRATE
     Indication: Product used for unknown indication
     Route: 065
  17. MILRINONE [Suspect]
     Active Substance: MILRINONE
     Indication: Product used for unknown indication
     Route: 065

REACTIONS (5)
  - Arterial injury [Recovering/Resolving]
  - Vascular anastomotic haemorrhage [Recovering/Resolving]
  - Vessel puncture site haemorrhage [Recovering/Resolving]
  - Liver disorder [Unknown]
  - Platelet count decreased [Unknown]
